FAERS Safety Report 7622314-4 (Version None)
Quarter: 2011Q3

REPORT INFORMATION
  Report Type: 
  Country: None (occurrence: None)
  Receive Date: 20110711
  Receipt Date: 20110627
  Transmission Date: 20111222
  Serious: Yes (Other)
  Sender: FDA-Public Use
  Company Number: 2011SP029888

PATIENT
  Age: 47 Year
  Sex: Male

DRUGS (15)
  1. LOPERAMIDE [Suspect]
     Indication: DIARRHOEA
  2. ALPRAZOLAM [Suspect]
     Indication: PRODUCT USED FOR UNKNOWN INDICATION
     Dosage: 0.5 MG; BID;
  3. CIMETIDINE [Suspect]
     Indication: CHEMOTHERAPY
     Dosage: 300 MG; ; IV
     Route: 042
  4. ERLOTINIB HYDROCHLORIDE [Suspect]
     Indication: LUNG NEOPLASM MALIGNANT
     Dosage: 150 MG; QD; PO
     Route: 048
  5. GRANISETRON [Suspect]
     Indication: CHEMOTHERAPY
     Dosage: 1 MG; ; IV
     Route: 042
  6. BEVACIZUMAB (BEVACIZUMAB) [Suspect]
     Indication: PRODUCT USED FOR UNKNOWN INDICATION
     Dosage: 1497 MG; QD;
  7. OXYCODONE HCL [Suspect]
     Indication: PAIN
     Dosage: 5 MG;
  8. PHYTONADIONE [Suspect]
     Indication: PRODUCT USED FOR UNKNOWN INDICATION
     Dosage: ; QD;
  9. WARFARIN SODIUM [Suspect]
     Indication: EMBOLISM VENOUS
     Dosage: 2.5 MG;
  10. DEXAMETHASONE [Suspect]
     Indication: PRODUCT USED FOR UNKNOWN INDICATION
     Dosage: 20 MG;
  11. DIPHENHYDRAMINE HCL [Suspect]
     Indication: CHEMOTHERAPY
     Dosage: 25 MG;
  12. CARBOPLATIN [Suspect]
     Indication: CHEMOTHERAPY
     Dosage: 285 MG; ; IV
     Route: 042
  13. CITALOPRAM HYDROBROMIDE [Suspect]
     Indication: PRODUCT USED FOR UNKNOWN INDICATION
     Dosage: 10 MG;
  14. DARBEPOETIN ALFA (DARBEPOETIN ALFA) [Suspect]
     Indication: PRODUCT USED FOR UNKNOWN INDICATION
     Dosage: ; QD;
  15. PACLITAXEL [Suspect]
     Indication: CHEMOTHERAPY
     Dosage: 130 MG; ; IV
     Route: 042

REACTIONS (8)
  - WEIGHT DECREASED [None]
  - INTERNATIONAL NORMALISED RATIO INCREASED [None]
  - DRUG INTERACTION [None]
  - CONTUSION [None]
  - SWELLING [None]
  - RASH [None]
  - HAEMATOMA [None]
  - DIARRHOEA [None]
